FAERS Safety Report 14301031 (Version 2)
Quarter: 2017Q4

REPORT INFORMATION
  Report Type: Spontaneous
  Country: US (occurrence: US)
  Receive Date: 20171219
  Receipt Date: 20171221
  Transmission Date: 20180321
  Serious: Yes (Other)
  Sender: FDA-Public Use
  Company Number: US-PFIZER INC-2017530191

PATIENT
  Age: 66 Year
  Sex: Female
  Weight: 69.84 kg

DRUGS (4)
  1. DESVENLAFAXINE SUCCINATE MONOHYDRATE [Suspect]
     Active Substance: DESVENLAFAXINE SUCCINATE
     Indication: DEPRESSION
     Dosage: 25 MG, 1X/DAY
     Route: 048
     Dates: start: 20171201, end: 20171210
  2. NALTREXONE [Concomitant]
     Active Substance: NALTREXONE
     Indication: DEPRESSION
     Dosage: UNK (50MG TABLET THAT SHE CRUSHES AND PUTS IN 50CC OF DISTILLED WATER, THEN TAKES 3CC PER DAY)
     Dates: start: 201711
  3. NALTREXONE [Concomitant]
     Active Substance: NALTREXONE
     Indication: ANXIETY
  4. LEVOTHYROXINE SODIUM. [Concomitant]
     Active Substance: LEVOTHYROXINE SODIUM
     Indication: THYROID DISORDER
     Dosage: 75 UG, 1X/DAY

REACTIONS (6)
  - Musculoskeletal stiffness [Not Recovered/Not Resolved]
  - Body temperature increased [Not Recovered/Not Resolved]
  - Chest pain [Not Recovered/Not Resolved]
  - Condition aggravated [Not Recovered/Not Resolved]
  - Dyspnoea [Not Recovered/Not Resolved]
  - Back pain [Not Recovered/Not Resolved]

NARRATIVE: CASE EVENT DATE: 20171206
